FAERS Safety Report 17767491 (Version 2)
Quarter: 2021Q3

REPORT INFORMATION
  Report Type: Spontaneous
  Country: DE (occurrence: DE)
  Receive Date: 20200511
  Receipt Date: 20210914
  Transmission Date: 20211014
  Serious: Yes (Other)
  Sender: FDA-Public Use
  Company Number: DE-OTSUKA-2020_011704

PATIENT

DRUGS (9)
  1. BUSULFAN. [Suspect]
     Active Substance: BUSULFAN
     Indication: IMMUNOSUPPRESSANT DRUG THERAPY
     Dosage: UNKNOWN
     Route: 065
  2. CYCLOSPORINE. [Suspect]
     Active Substance: CYCLOSPORINE
     Indication: PROPHYLAXIS AGAINST GRAFT VERSUS HOST DISEASE
     Dosage: QD; TARGET LEVEL OF 200 NG/ML/DAY
     Route: 065
  3. ALEMTUZUMAB [Suspect]
     Active Substance: ALEMTUZUMAB
     Dosage: 30 MG/48 HOURS WEEKLY
     Route: 041
  4. BUSULFAN. [Suspect]
     Active Substance: BUSULFAN
     Indication: T-CELL PROLYMPHOCYTIC LEUKAEMIA
  5. FLUDARABINE PHOSPHATE. [Suspect]
     Active Substance: FLUDARABINE PHOSPHATE
     Indication: IMMUNOSUPPRESSANT DRUG THERAPY
  6. ALEMTUZUMAB [Suspect]
     Active Substance: ALEMTUZUMAB
     Indication: IMMUNOSUPPRESSANT DRUG THERAPY
     Dosage: QW; 3,10,30 MG/48 HOURS WEEKLY
     Route: 041
  7. CYCLOPHOSPHAMIDE. [Suspect]
     Active Substance: CYCLOPHOSPHAMIDE
     Indication: IMMUNOSUPPRESSANT DRUG THERAPY
     Dosage: UNKNOWN
     Route: 065
  8. MYCOPHENOLATE MOFETIL. [Suspect]
     Active Substance: MYCOPHENOLATE MOFETIL
     Indication: PROPHYLAXIS AGAINST GRAFT VERSUS HOST DISEASE
     Dosage: UNK UNK, QD
     Route: 065
  9. FLUDARABINE PHOSPHATE. [Suspect]
     Active Substance: FLUDARABINE PHOSPHATE
     Indication: T-CELL PROLYMPHOCYTIC LEUKAEMIA
     Dosage: UNKNOWN
     Route: 065

REACTIONS (3)
  - Cytomegalovirus infection reactivation [Unknown]
  - Lymphocytosis [Unknown]
  - Splenomegaly [Unknown]
